FAERS Safety Report 10896414 (Version 1)
Quarter: 2015Q1

REPORT INFORMATION
  Report Type: Spontaneous
  Country: US (occurrence: None)
  Receive Date: 20150302
  Receipt Date: 20150302
  Transmission Date: 20150721
  Serious: Yes (Other)
  Sender: FDA-Public Use
  Company Number: None

PATIENT
  Age: 41 Year
  Sex: Female
  Weight: 77.11 kg

DRUGS (3)
  1. DULOXETINE HYDROCHLORIDE. [Suspect]
     Active Substance: DULOXETINE HYDROCHLORIDE
     Indication: DEPRESSION
     Dosage: 1
     Route: 048
     Dates: start: 20150126, end: 20150218
  2. DULOXETINE HYDROCHLORIDE. [Suspect]
     Active Substance: DULOXETINE HYDROCHLORIDE
     Indication: ANXIETY
     Dosage: 1
     Route: 048
     Dates: start: 20150126, end: 20150218
  3. DULOXETINE HYDROCHLORIDE. [Suspect]
     Active Substance: DULOXETINE HYDROCHLORIDE
     Indication: SEIZURE
     Dosage: 1
     Route: 048
     Dates: start: 20150126, end: 20150218

REACTIONS (9)
  - Product quality issue [None]
  - Dizziness [None]
  - Drug ineffective [None]
  - Anxiety [None]
  - Euphoric mood [None]
  - Panic attack [None]
  - Product substitution issue [None]
  - Depression [None]
  - Headache [None]

NARRATIVE: CASE EVENT DATE: 20150217
